FAERS Safety Report 9074092 (Version 1)
Quarter: 2013Q1

REPORT INFORMATION
  Report Type: Spontaneous
  Country: US (occurrence: US)
  Receive Date: 20130129
  Receipt Date: 20130129
  Transmission Date: 20140127
  Serious: Yes (Hospitalization, Other)
  Sender: FDA-Public Use
  Company Number: US-ABBOTT-12P-163-0918711-00

PATIENT
  Age: 59 None
  Sex: Female
  Weight: 78.09 kg

DRUGS (5)
  1. HUMIRA 40 MG/0.8 ML PEN [Suspect]
     Indication: PSORIATIC ARTHROPATHY
     Dates: start: 200707
  2. HUMIRA 40 MG/0.8 ML PEN [Suspect]
     Dates: start: 20080314, end: 20100709
  3. HUMIRA 40 MG/0.8 ML PEN [Suspect]
     Dates: start: 20100709, end: 20111121
  4. HUMIRA 40 MG/0.8 ML PEN [Suspect]
     Dates: start: 20111219, end: 20120316
  5. HUMIRA 40 MG/0.8 ML PEN [Suspect]
     Dates: start: 20111121, end: 20111219

REACTIONS (14)
  - Surgery [Unknown]
  - Sepsis [Recovered/Resolved]
  - Infection [Recovered/Resolved]
  - Psoriasis [Not Recovered/Not Resolved]
  - Injection site nodule [Not Recovered/Not Resolved]
  - Injection site haemorrhage [Not Recovered/Not Resolved]
  - Pruritus [Not Recovered/Not Resolved]
  - Gait disturbance [Unknown]
  - Musculoskeletal disorder [Unknown]
  - Pain in extremity [Unknown]
  - Arthralgia [Unknown]
  - Iliotibial band syndrome [Unknown]
  - Psoriasis [Not Recovered/Not Resolved]
  - Drug ineffective [Not Recovered/Not Resolved]
